FAERS Safety Report 11504602 (Version 1)
Quarter: 2015Q3

REPORT INFORMATION
  Report Type: Spontaneous
  Country: US (occurrence: US)
  Receive Date: 20150915
  Receipt Date: 20150915
  Transmission Date: 20151125
  Serious: No
  Sender: FDA-Public Use
  Company Number: US-ROCHE-1001640

PATIENT
  Sex: Female

DRUGS (7)
  1. SOMA [Concomitant]
     Active Substance: CARISOPRODOL
     Indication: BACK PAIN
     Route: 065
  2. THYROID MEDICATION [Concomitant]
     Active Substance: UNSPECIFIED INGREDIENT
     Route: 065
  3. INCIVO [Concomitant]
     Active Substance: TELAPREVIR
     Indication: HEPATITIS C
     Route: 065
  4. PEGASYS [Suspect]
     Active Substance: PEGINTERFERON ALFA-2A
     Indication: HEPATITIS C
     Route: 065
  5. RIBASPHERE [Suspect]
     Active Substance: RIBAVIRIN
     Indication: HEPATITIS C
     Route: 065
  6. PAIN KILLER (UNK INGREDIENTS) [Concomitant]
     Indication: BACK PAIN
     Route: 065
  7. IBUPROFEN. [Concomitant]
     Active Substance: IBUPROFEN
     Indication: BACK PAIN
     Route: 065

REACTIONS (1)
  - Drug administration error [Unknown]
